FAERS Safety Report 14616860 (Version 1)
Quarter: 2018Q1

REPORT INFORMATION
  Report Type: Spontaneous
  Country: US (occurrence: US)
  Receive Date: 20180308
  Receipt Date: 20180308
  Transmission Date: 20180509
  Serious: Yes (Death, Hospitalization)
  Sender: FDA-Public Use
  Company Number: None

PATIENT
  Age: 76 Year
  Sex: Male
  Weight: 45 kg

DRUGS (1)
  1. ATACAND [Suspect]
     Active Substance: CANDESARTAN CILEXETIL
     Indication: HYPERTENSION
     Dates: start: 20061201, end: 20081212

REACTIONS (6)
  - Depression [None]
  - Weight decreased [None]
  - Constipation [None]
  - Gastrointestinal pain [None]
  - Gastrointestinal disorder [None]
  - Completed suicide [None]

NARRATIVE: CASE EVENT DATE: 20081226
